FAERS Safety Report 23365211 (Version 1)
Quarter: 2024Q1

REPORT INFORMATION
  Report Type: Report from Study
  Country: US (occurrence: US)
  Receive Date: 20240104
  Receipt Date: 20240104
  Transmission Date: 20240410
  Serious: Yes (Hospitalization)
  Sender: FDA-Public Use
  Company Number: US-EXELIXIS-CABO-23068228

PATIENT
  Sex: Male
  Weight: 126.98 kg

DRUGS (3)
  1. CABOMETYX [Suspect]
     Active Substance: CABOZANTINIB S-MALATE
     Indication: Renal cancer
     Dosage: 40 MG, QD
     Route: 048
     Dates: start: 2022
  2. CABOMETYX [Suspect]
     Active Substance: CABOZANTINIB S-MALATE
     Dosage: 20 MG, QD
     Route: 048
     Dates: start: 20230817
  3. FOTIVDA [Suspect]
     Active Substance: TIVOZANIB HYDROCHLORIDE
     Indication: Renal cancer
     Dosage: 0.89 MG, ONCE DAILY 21 DAYS ON AND 7 DAYS OFF
     Dates: start: 20231208

REACTIONS (13)
  - Adverse drug reaction [Unknown]
  - Cellulitis [Unknown]
  - Thrombosis [Unknown]
  - Alopecia [Unknown]
  - Taste disorder [Recovering/Resolving]
  - Blood pressure increased [Recovering/Resolving]
  - Rash [Unknown]
  - Vitamin B12 decreased [Unknown]
  - Limb injury [Not Recovered/Not Resolved]
  - Sensitive skin [Unknown]
  - Somnolence [Unknown]
  - Contusion [Unknown]
  - Impaired healing [Unknown]
